FAERS Safety Report 6072202-2 (Version None)
Quarter: 2009Q1

REPORT INFORMATION
  Report Type: 
  Country: None (occurrence: None)
  Receive Date: 20090206
  Receipt Date: 20090206
  Transmission Date: 20090719
  Serious: Yes (Other)
  Sender: FDA-Public Use
  Company Number: None

PATIENT
  Sex: Male
  Weight: 46.4937 kg

DRUGS (1)
  1. SEROQUEL [Suspect]
     Indication: PSYCHOTIC DISORDER
     Dosage: 25 MG 1 HS INJ
     Dates: start: 20090130, end: 20090131

REACTIONS (5)
  - ATAXIA [None]
  - DYSTONIA [None]
  - HEADACHE [None]
  - NEUROLEPTIC MALIGNANT SYNDROME [None]
  - TREMOR [None]
